FAERS Safety Report 10956099 (Version 1)
Quarter: 2015Q1

REPORT INFORMATION
  Report Type: Spontaneous
  Country: PT (occurrence: None)
  Receive Date: 20150318
  Receipt Date: 20150318
  Transmission Date: 20150721
  Serious: Yes (Hospitalization)
  Sender: FDA-Public Use
  Company Number: GAM-071-15-PT

PATIENT
  Age: 44 Year
  Sex: Female

DRUGS (1)
  1. OCTAGAM IMMUNE GLOBULIN (HUMAN) [Suspect]
     Active Substance: HUMAN IMMUNOGLOBULIN G
     Indication: IMMUNE THROMBOCYTOPENIC PURPURA
     Dosage: 90 G (1X 1/TOTAL)
     Route: 040
     Dates: start: 20150129, end: 20150130

REACTIONS (10)
  - Myalgia [None]
  - Neck pain [None]
  - Vomiting psychogenic [None]
  - Pre-existing disease [None]
  - Headache [None]
  - Cough [None]
  - Pyrexia [None]
  - Chills [None]
  - Back pain [None]
  - Condition aggravated [None]

NARRATIVE: CASE EVENT DATE: 20150130
